FAERS Safety Report 10537103 (Version 1)
Quarter: 2014Q4

REPORT INFORMATION
  Report Type: Spontaneous
  Country: DE (occurrence: DE)
  Receive Date: 20141022
  Receipt Date: 20141022
  Transmission Date: 20150529
  Serious: Yes (Other)
  Sender: FDA-Public Use
  Company Number: PHHY2014DE136467

PATIENT
  Sex: Male

DRUGS (4)
  1. TILIDINE [Suspect]
     Active Substance: TILIDINE
     Indication: PAIN
     Dosage: UNK UKN, PRN
     Route: 065
  2. IBUPROFEN. [Concomitant]
     Active Substance: IBUPROFEN
     Indication: PRODUCT USED FOR UNKNOWN INDICATION
     Route: 065
  3. NOVAMINSULFON [Concomitant]
     Active Substance: METAMIZOLE
     Indication: PRODUCT USED FOR UNKNOWN INDICATION
     Route: 065
  4. DICLOFENAC [Suspect]
     Active Substance: DICLOFENAC
     Indication: PAIN
     Dosage: UNK UKN, UNK
     Route: 065

REACTIONS (7)
  - Pancreatitis chronic [Unknown]
  - Renal disorder [Unknown]
  - Constipation [Unknown]
  - Fatigue [Unknown]
  - Herpes zoster [Unknown]
  - VIIth nerve paralysis [Unknown]
  - Gastric disorder [Unknown]
